FAERS Safety Report 19583060 (Version 1)
Quarter: 2021Q3

REPORT INFORMATION
  Report Type: Spontaneous
  Country: HR (occurrence: HR)
  Receive Date: 20210720
  Receipt Date: 20210720
  Transmission Date: 20211014
  Serious: Yes (Other)
  Sender: FDA-Public Use
  Company Number: HR-009507513-2107HRV005813

PATIENT
  Age: 59 Year
  Sex: Male

DRUGS (2)
  1. SYNOPEN [CHLOROPYRAMINE] [Suspect]
     Active Substance: CHLOROPYRAMINE
     Indication: NON-SMALL CELL LUNG CANCER
     Dosage: 1 DOSAGE FORM
  2. PEMBROLIZUMAB. [Suspect]
     Active Substance: PEMBROLIZUMAB
     Indication: NON-SMALL CELL LUNG CANCER
     Dosage: 200 MILLIGRAM, EVERY 3 WEEKS
     Route: 042
     Dates: start: 201909

REACTIONS (2)
  - Malignant neoplasm progression [Unknown]
  - Tumour pseudoprogression [Unknown]

NARRATIVE: CASE EVENT DATE: 2019
